FAERS Safety Report 24893848 (Version 4)
Quarter: 2025Q2

REPORT INFORMATION
  Report Type: Spontaneous
  Country: JP (occurrence: JP)
  Receive Date: 20250128
  Receipt Date: 20250519
  Transmission Date: 20250716
  Serious: Yes (Other)
  Sender: TAKEDA
  Company Number: JP-TAKEDA-2025TJP000998

PATIENT
  Age: 49 Year
  Sex: Male

DRUGS (1)
  1. FRUZAQLA [Suspect]
     Active Substance: FRUQUINTINIB
     Indication: Colorectal cancer recurrent
     Dosage: 4 MILLIGRAM, QD
     Dates: start: 20241225, end: 202501

REACTIONS (3)
  - Hypoalbuminaemia [Unknown]
  - Protein urine present [Unknown]
  - Oedema [Unknown]

NARRATIVE: CASE EVENT DATE: 20250101
